FAERS Safety Report 16828071 (Version 1)
Quarter: 2019Q4

REPORT INFORMATION
  Report Type: Spontaneous
  Country: US (occurrence: US)
  Receive Date: 20190919
  Receipt Date: 20190919
  Transmission Date: 20200122
  Serious: No
  Sender: FDA-Public Use
  Company Number: None

PATIENT
  Age: 25 Year
  Sex: Female

DRUGS (7)
  1. SYNTHROID TAB 100 MG [Concomitant]
  2. BETHANECHOL TAB 10 MG [Concomitant]
  3. NEXIUM GRA 40 MG DR [Concomitant]
  4. LEVABUTEROL NEB 1.25 MG [Concomitant]
  5. TOPIRAMATE TAB 25 MG [Concomitant]
  6. BUDESONIDE SUS 0.5 MG /2 [Concomitant]
  7. TOBRAMYCIN. [Suspect]
     Active Substance: TOBRAMYCIN
     Indication: PRODUCT USED FOR UNKNOWN INDICATION
     Route: 055
     Dates: start: 20180928

REACTIONS (1)
  - Hospitalisation [None]
